FAERS Safety Report 13546107 (Version 6)
Quarter: 2017Q3

REPORT INFORMATION
  Report Type: Spontaneous
  Country: US (occurrence: US)
  Receive Date: 20170515
  Receipt Date: 20170807
  Transmission Date: 20171127
  Serious: No
  Sender: FDA-Public Use
  Company Number: US-PFIZER INC-2017203860

PATIENT
  Age: 41 Year
  Sex: Male

DRUGS (2)
  1. EUCRISA [Suspect]
     Active Substance: CRISABOROLE
     Indication: DERMATITIS ATOPIC
     Dosage: UNK
     Route: 061
     Dates: start: 20170320
  2. EUCRISA [Suspect]
     Active Substance: CRISABOROLE
     Indication: ECZEMA
     Dosage: 2X/DAY
     Route: 061
     Dates: start: 20170314

REACTIONS (9)
  - Muscle spasms [Recovered/Resolved]
  - Burning sensation [Recovered/Resolved]
  - Dehydration [Recovered/Resolved]
  - Rebound eczema [Recovered/Resolved]
  - Skin exfoliation [Recovered/Resolved]
  - Chromaturia [Recovered/Resolved]
  - Dry skin [Recovered/Resolved]
  - Pain [Recovered/Resolved]
  - Impaired healing [Recovered/Resolved]

NARRATIVE: CASE EVENT DATE: 20170314
